FAERS Safety Report 21625570 (Version 1)
Quarter: 2022Q4

REPORT INFORMATION
  Report Type: Spontaneous
  Country: US (occurrence: None)
  Receive Date: 20221122
  Receipt Date: 20221122
  Transmission Date: 20230113
  Serious: No
  Sender: FDA-Public Use
  Company Number: US-ROCHE-3005118

PATIENT
  Sex: Male
  Weight: 136.20 kg

DRUGS (2)
  1. HERCEPTIN [Suspect]
     Active Substance: TRASTUZUMAB
     Indication: Oesophageal neoplasm
     Route: 041
     Dates: start: 20200815
  2. CAPECITABINE [Suspect]
     Active Substance: CAPECITABINE
     Indication: Oesophageal neoplasm
     Dosage: 500MG- 2 TABLETS BY MOUTH TWICE A DAY FOR 14 DAYS THEN 7 DAYS OFF
     Route: 048
     Dates: start: 20210616

REACTIONS (4)
  - Intentional product use issue [Unknown]
  - Intentional product use issue [Unknown]
  - Off label use [Unknown]
  - No adverse event [Unknown]
